FAERS Safety Report 8861816 (Version 1)
Quarter: 2012Q4

REPORT INFORMATION
  Report Type: 
  Country: US (occurrence: US)
  Receive Date: 20121025
  Receipt Date: 20121025
  Transmission Date: 20130627
  Serious: No
  Sender: FDA-Public Use
  Company Number: US-AMGEN-USASP2012022277

PATIENT
  Age: 55 Year
  Sex: Male
  Weight: 77.1 kg

DRUGS (13)
  1. ENBREL [Suspect]
     Indication: PRODUCT USED FOR UNKNOWN INDICATION
     Dosage: 50 mg, qwk
     Route: 058
  2. ALEVE [Concomitant]
     Dosage: 220 mg, UNK
  3. LEXAPRO [Concomitant]
     Dosage: 20 mg, UNK
  4. VITAMIN E                          /00110501/ [Concomitant]
     Dosage: UNK
  5. ZINC [Concomitant]
     Dosage: 30 mg, UNK
  6. MAGNESIUM [Concomitant]
     Dosage: 200 mg, UNK
  7. VITAMIN B12                        /06860901/ [Concomitant]
     Dosage: 100 mug, UNK
  8. FISH OIL [Concomitant]
     Dosage: UNK
  9. SAW PALMETTO                       /00833501/ [Concomitant]
     Dosage: UNK
  10. OXYCODONE [Concomitant]
     Dosage: 10 mg, UNK
  11. HYDROCODONE W/APAP                 /00607101/ [Concomitant]
     Dosage: UNK
  12. NAPROSYN /00256201/ [Concomitant]
     Dosage: 250 mg, UNK
  13. VITAMIN B COMPLEX [Concomitant]
     Dosage: UNK

REACTIONS (4)
  - Musculoskeletal pain [Unknown]
  - Irritability [Unknown]
  - Mood altered [Unknown]
  - Hypersensitivity [Unknown]
